FAERS Safety Report 11157151 (Version 3)
Quarter: 2016Q2

REPORT INFORMATION
  Report Type: Report from Study
  Country: US (occurrence: US)
  Receive Date: 20150602
  Receipt Date: 20160502
  Transmission Date: 20160815
  Serious: Yes (Other)
  Sender: FDA-Public Use
  Company Number: US-CELGENEUS-USA-2015055223

PATIENT
  Age: 72 Year
  Sex: Male
  Weight: 64.41 kg

DRUGS (4)
  1. REVLIMID [Suspect]
     Active Substance: LENALIDOMIDE
     Route: 048
  2. DEXAMETHASONE. [Concomitant]
     Active Substance: DEXAMETHASONE
     Indication: PLASMA CELL MYELOMA
     Dosage: .7 MILLIGRAM/SQ. METER
     Route: 065
     Dates: start: 20141001
  3. BORTEZOMIB [Concomitant]
     Active Substance: BORTEZOMIB
     Indication: PLASMA CELL MYELOMA
     Route: 041
     Dates: start: 20141001
  4. REVLIMID [Suspect]
     Active Substance: LENALIDOMIDE
     Indication: PLASMA CELL MYELOMA
     Route: 048
     Dates: start: 20141001

REACTIONS (24)
  - Bone pain [Unknown]
  - Pain [Unknown]
  - Decreased appetite [Unknown]
  - Rash [Unknown]
  - Muscle spasms [Unknown]
  - Haemorrhage [Unknown]
  - Chills [Unknown]
  - Diarrhoea [Unknown]
  - Pyrexia [Unknown]
  - Dizziness [Unknown]
  - Headache [Unknown]
  - Contusion [Unknown]
  - Influenza [Unknown]
  - Nausea [Unknown]
  - Weight decreased [Unknown]
  - Arthralgia [Unknown]
  - Neuropathy peripheral [Unknown]
  - Dyspnoea [Unknown]
  - Rhinorrhoea [Unknown]
  - Myalgia [Unknown]
  - Vomiting [Unknown]
  - Musculoskeletal pain [Unknown]
  - Anxiety [Unknown]
  - Night sweats [Unknown]

NARRATIVE: CASE EVENT DATE: 20150301
